FAERS Safety Report 6499100-4 (Version None)
Quarter: 2009Q4

REPORT INFORMATION
  Report Type: 
  Country: None (occurrence: None)
  Receive Date: 20091215
  Receipt Date: 20091204
  Transmission Date: 20100525
  Serious: Yes (Other)
  Sender: FDA-Public Use
  Company Number: US-PFIZER INC-2009295604

PATIENT
  Sex: Female

DRUGS (1)
  1. CHANTIX [Suspect]

REACTIONS (8)
  - ABNORMAL BEHAVIOUR [None]
  - ABNORMAL DREAMS [None]
  - ADVERSE EVENT [None]
  - CONSTIPATION [None]
  - JOINT INJURY [None]
  - NAUSEA [None]
  - SUICIDAL IDEATION [None]
  - VOMITING [None]
